FAERS Safety Report 12127571 (Version 3)
Quarter: 2023Q1

REPORT INFORMATION
  Report Type: Spontaneous
  Country: GB (occurrence: GB)
  Receive Date: 20160229
  Receipt Date: 20230116
  Transmission Date: 20230417
  Serious: Yes (Congenital Anomaly, Other)
  Sender: FDA-Public Use
  Company Number: None

PATIENT

DRUGS (5)
  1. RANITIDINE HYDROCHLORIDE [Suspect]
     Active Substance: RANITIDINE HYDROCHLORIDE
     Indication: Foetal exposure during pregnancy
     Dosage: UNK, UNK (EVERY)
     Route: 064
  2. METFORMIN [Suspect]
     Active Substance: METFORMIN HYDROCHLORIDE
     Indication: Foetal exposure during pregnancy
     Dosage: UNK, UNK (EVERY)
     Route: 064
  3. PAROXETINE [Suspect]
     Active Substance: PAROXETINE
     Indication: Foetal exposure during pregnancy
     Dosage: 15 MG,  UNK (EVERY)
     Route: 064
  4. DAPAGLIFLOZIN [Suspect]
     Active Substance: DAPAGLIFLOZIN
     Indication: Foetal exposure during pregnancy
     Dosage: 10 MG (EVERY),  UNK
     Route: 064
  5. DAPAGLIFLOZIN [Suspect]
     Active Substance: DAPAGLIFLOZIN
     Indication: Product used for unknown indication
     Dosage: 10 MG
     Route: 064

REACTIONS (2)
  - Congenital hydrocephalus [Unknown]
  - Foetal exposure during pregnancy [Unknown]
